FAERS Safety Report 9714407 (Version 1)
Quarter: 2013Q4

REPORT INFORMATION
  Report Type: Spontaneous
  Country: US (occurrence: US)
  Receive Date: 20131126
  Receipt Date: 20131126
  Transmission Date: 20140711
  Serious: No
  Sender: FDA-Public Use
  Company Number: US-009507513-1311USA011244

PATIENT
  Age: 29 Year
  Sex: Male

DRUGS (5)
  1. CLARITIN-D-24 [Suspect]
     Indication: SEASONAL ALLERGY
     Dosage: UNK, UNKNOWN
     Route: 048
  2. CLARITIN-D-24 [Suspect]
     Indication: RESPIRATORY TRACT CONGESTION
  3. CLARITIN-D-24 [Suspect]
     Indication: OCULAR HYPERAEMIA
  4. CLARITIN-D-24 [Suspect]
     Indication: EYE PRURITUS
  5. CLARITIN-D-24 [Suspect]
     Indication: LACRIMATION INCREASED

REACTIONS (1)
  - Headache [Unknown]
